FAERS Safety Report 9370815 (Version 2)
Quarter: 2013Q3

REPORT INFORMATION
  Report Type: Spontaneous
  Country: GB (occurrence: GB)
  Receive Date: 20130626
  Receipt Date: 20130712
  Transmission Date: 20140515
  Serious: Yes (Hospitalization, Other)
  Sender: FDA-Public Use
  Company Number: GB-B.I. PHARMACEUTICALS,INC./RIDGEFIELD-2013-BI-18516GD

PATIENT
  Age: 19 Year
  Sex: Female

DRUGS (2)
  1. PRADAXA [Suspect]
     Indication: ANTICOAGULANT THERAPY
     Dosage: 300 MG
  2. PRADAXA [Suspect]

REACTIONS (3)
  - Pulmonary embolism [Recovered/Resolved]
  - Haemoptysis [Unknown]
  - Menorrhagia [Unknown]
